FAERS Safety Report 6918241-8 (Version None)
Quarter: 2010Q3

REPORT INFORMATION
  Report Type: 
  Country: None (occurrence: None)
  Receive Date: 20100811
  Receipt Date: 20100730
  Transmission Date: 20110219
  Serious: Yes (Hospitalization)
  Sender: FDA-Public Use
  Company Number: US-RANBAXY-2010US-36614

PATIENT

DRUGS (2)
  1. PHENOBARBITAL [Suspect]
     Indication: FEBRILE CONVULSION
     Dosage: UNK, UNK
     Route: 065
  2. PHENOBARBITAL [Suspect]
     Dosage: INCREASED TO 60 MG PER DAY
     Route: 065

REACTIONS (1)
  - DRUG RASH WITH EOSINOPHILIA AND SYSTEMIC SYMPTOMS [None]
